FAERS Safety Report 6772799-0 (Version None)
Quarter: 2010Q2

REPORT INFORMATION
  Report Type: 
  Country: None (occurrence: None)
  Receive Date: 20100616
  Receipt Date: 20100608
  Transmission Date: 20101027
  Serious: Yes (Hospitalization)
  Sender: FDA-Public Use
  Company Number: GXKR2010FR06401

PATIENT
  Sex: Male

DRUGS (8)
  1. PACLITAXEL EBEWE (NGX) [Suspect]
     Indication: METASTASES TO LIVER
     Dosage: SIX CYCLES
     Route: 042
     Dates: start: 20091204, end: 20100324
  2. CARBOPLATIN [Suspect]
     Indication: METASTASES TO LIVER
     Dosage: 175 MG/M2 SIX CYCLES
     Route: 042
     Dates: start: 20091204, end: 20100324
  3. CISPLATIN [Suspect]
     Indication: ADENOCARCINOMA
     Dosage: UNK
     Route: 042
     Dates: start: 20090801, end: 20090901
  4. FLUOROURACIL [Suspect]
     Indication: ADENOCARCINOMA
     Dosage: UNK
     Route: 042
     Dates: start: 20090801, end: 20090901
  5. ARIXTRA [Concomitant]
     Indication: PULMONARY EMBOLISM
     Dosage: 7.5 MG/DAY
     Dates: start: 20091101
  6. CLOZAPINE [Concomitant]
  7. ACETAMINOPHEN W/ CODEINE [Concomitant]
  8. SPASFON [Concomitant]

REACTIONS (4)
  - ENDOTRACHEAL INTUBATION [None]
  - RENAL FAILURE ACUTE [None]
  - RETROPERITONEAL FIBROSIS [None]
  - URETERIC DILATATION [None]
